FAERS Safety Report 12757760 (Version 1)
Quarter: 2016Q3

REPORT INFORMATION
  Report Type: Spontaneous
  Country: AU (occurrence: AU)
  Receive Date: 20160919
  Receipt Date: 20160919
  Transmission Date: 20161109
  Serious: No
  Sender: FDA-Public Use
  Company Number: AU-009507513-1006USA00105

PATIENT
  Age: 36 Month
  Sex: Male

DRUGS (5)
  1. FLIXOTIDE [Concomitant]
     Active Substance: FLUTICASONE PROPIONATE
  2. SINGULAIR [Suspect]
     Active Substance: MONTELUKAST SODIUM
     Indication: SEASONAL ALLERGY
  3. NASONEX [Concomitant]
     Active Substance: MOMETASONE FUROATE
  4. SINGULAIR [Suspect]
     Active Substance: MONTELUKAST SODIUM
     Indication: RHINITIS ALLERGIC
     Dosage: 4 MG, QD
     Route: 048
     Dates: start: 20100423, end: 20100527
  5. SINGULAIR [Suspect]
     Active Substance: MONTELUKAST SODIUM
     Indication: ASTHMA

REACTIONS (5)
  - Abdominal pain upper [Unknown]
  - Abnormal behaviour [Unknown]
  - Physical assault [Unknown]
  - Frustration tolerance decreased [Unknown]
  - Aggression [Unknown]

NARRATIVE: CASE EVENT DATE: 20100507
